FAERS Safety Report 9615942 (Version 1)
Quarter: 2013Q4

REPORT INFORMATION
  Report Type: Spontaneous
  Country: US (occurrence: None)
  Receive Date: 20131010
  Receipt Date: 20131010
  Transmission Date: 20140711
  Serious: Yes (Other)
  Sender: FDA-Public Use
  Company Number: None

PATIENT
  Age: 64 Year
  Sex: Male
  Weight: 80.29 kg

DRUGS (1)
  1. PREDNISONE [Suspect]
     Indication: UPPER RESPIRATORY TRACT CONGESTION
     Dosage: 6 DAY PAK, AS NEEDED, TAKEN BY MOUTH
     Route: 048
     Dates: start: 20131002, end: 20131007

REACTIONS (1)
  - Therapeutic response unexpected [None]
